FAERS Safety Report 13175707 (Version 1)
Quarter: 2017Q1

REPORT INFORMATION
  Report Type: Spontaneous
  Country: US (occurrence: US)
  Receive Date: 20170201
  Receipt Date: 20170201
  Transmission Date: 20170428
  Serious: Yes (Hospitalization, Other)
  Sender: FDA-Public Use
  Company Number: US-LINDEGASP-US-LHC-2017025

PATIENT
  Age: 38 Year
  Sex: Male

DRUGS (1)
  1. NITROUS OXIDE (GENERIC) [Suspect]
     Active Substance: NITROUS OXIDE

REACTIONS (3)
  - Drug abuse [Recovered/Resolved with Sequelae]
  - Subacute combined cord degeneration [Recovered/Resolved with Sequelae]
  - Substance-induced psychotic disorder [Recovered/Resolved with Sequelae]
